FAERS Safety Report 4551975-1 (Version None)
Quarter: 2005Q1

REPORT INFORMATION
  Report Type: 
  Country: None (occurrence: None)
  Receive Date: 20050112
  Receipt Date: 20041231
  Transmission Date: 20050727
  Serious: Yes (Hospitalization)
  Sender: FDA-Public Use
  Company Number: 6012411

PATIENT
  Age: 61 Year
  Sex: Female

DRUGS (6)
  1. LEVOTHYROXINE SODIUM [Suspect]
     Indication: HYPOTHYROIDISM
     Dosage: 125,0000 MCG, ORAL
     Route: 048
  2. CORTANCYL (10 MG, TABLETS) (PREDNISONE) [Suspect]
     Indication: POLYARTHRITIS
     Dosage: 10,000 MG, ORAL
     Route: 048
     Dates: start: 20040308
  3. IXPRIM [Suspect]
     Dosage: ORAL
     Route: 048
  4. INEXIUM (20 MG, TABLETS) (ESOMEPRAZOLE) [Suspect]
     Dosage: 20, 000 MG (20 MG, 1 IN 1 D), ORAL
     Route: 048
  5. HUMIRA [Suspect]
     Indication: POLYARTHRITIS
     Dosage: SUBCUTANEOUS
     Route: 058
     Dates: start: 20040308, end: 20040904
  6. ARAVA [Concomitant]

REACTIONS (5)
  - LUNG DISORDER [None]
  - PERITONEAL DISORDER [None]
  - PLEURAL DISORDER [None]
  - TUBERCULOSIS [None]
  - URINARY TRACT DISORDER [None]
